FAERS Safety Report 23841926 (Version 1)
Quarter: 2024Q2

REPORT INFORMATION
  Report Type: Spontaneous
  Country: CA (occurrence: CA)
  Receive Date: 20240510
  Receipt Date: 20240510
  Transmission Date: 20240716
  Serious: Yes (Other)
  Sender: FDA-Public Use
  Company Number: CA-B.Braun Medical Inc.-2156845

PATIENT
  Age: 48 Year
  Sex: Male

DRUGS (24)
  1. LIDOCAINE HYDROCHLORIDE [Suspect]
     Active Substance: LIDOCAINE HYDROCHLORIDE
  2. ALLOPURINOL [Suspect]
     Active Substance: ALLOPURINOL
  3. SENNOSIDES [Suspect]
     Active Substance: SENNOSIDES
  4. RAMIPRIL [Suspect]
     Active Substance: RAMIPRIL
  5. POTASSIUM [Suspect]
     Active Substance: POTASSIUM
  6. POLYETHYLENE GLYCOL [Suspect]
     Active Substance: POLYETHYLENE GLYCOL
  7. PENTAMIDINE ISETHIONATE [Suspect]
     Active Substance: PENTAMIDINE ISETHIONATE
  8. PANTOPRAZOLE SODIUM ANHYDROUS [Suspect]
     Active Substance: PANTOPRAZOLE SODIUM ANHYDROUS
  9. NYSTATIN [Suspect]
     Active Substance: NYSTATIN
  10. MINERAL OIL [Suspect]
     Active Substance: MINERAL OIL
  11. METOPROLOL [Suspect]
     Active Substance: METOPROLOL
  12. MAGNESIUM GLUCEPTATE [Suspect]
     Active Substance: MAGNESIUM GLUCEPTATE
  13. LORAZEPAM [Suspect]
     Active Substance: LORAZEPAM
  14. LACTULOSE [Suspect]
     Active Substance: LACTULOSE
  15. HYDROXYUREA [Suspect]
     Active Substance: HYDROXYUREA
  16. HYDROMORPHONE [Suspect]
     Active Substance: HYDROMORPHONE
  17. FUROSEMIDE [Suspect]
     Active Substance: FUROSEMIDE
  18. FAMCICLOVIR [Suspect]
     Active Substance: FAMCICLOVIR
  19. DIPHENHYDRAMINE [Suspect]
     Active Substance: DIPHENHYDRAMINE
  20. CRESEMBA [Suspect]
     Active Substance: ISAVUCONAZONIUM SULFATE
  21. CIPROFLOXACIN HYDROCHLORIDE\DEXAMETHASONE [Suspect]
     Active Substance: CIPROFLOXACIN HYDROCHLORIDE\DEXAMETHASONE
  22. CHOLECALCIFEROL [Suspect]
     Active Substance: CHOLECALCIFEROL
  23. BISACODYL [Suspect]
     Active Substance: BISACODYL
  24. AMOXICILLIN\CLAVULANATE POTASSIUM [Suspect]
     Active Substance: AMOXICILLIN\CLAVULANATE POTASSIUM

REACTIONS (1)
  - Febrile neutropenia [Unknown]
